FAERS Safety Report 5113950-8 (Version None)
Quarter: 2006Q3

REPORT INFORMATION
  Report Type: 
  Country: None (occurrence: None)
  Receive Date: 20060921
  Receipt Date: 20060918
  Transmission Date: 20061208
  Serious: Yes (Hospitalization)
  Sender: FDA-Public Use
  Company Number: 2006P1000435

PATIENT
  Age: 47 Year
  Sex: Male
  Weight: 92 kg

DRUGS (10)
  1. RETEPLASE (RETEPLASE) [Suspect]
     Indication: MYOCARDIAL INFARCTION
     Dosage: IV
     Route: 042
     Dates: start: 20060422
  2. REOPRO [Suspect]
     Indication: MYOCARDIAL INFARCTION
     Dosage: IV
     Route: 042
     Dates: start: 20060422
  3. ASPIRIN [Concomitant]
  4. CARVEDILOL [Concomitant]
  5. SPIRONOLACTONE [Concomitant]
  6. CLOPIDOGREL [Concomitant]
  7. ATORVASTATIN [Concomitant]
  8. ISOSORBIDE [Concomitant]
  9. RAMIPRIL [Concomitant]
  10. TRIMETAZIDINE [Concomitant]

REACTIONS (1)
  - CORONARY ARTERY STENOSIS [None]
